FAERS Safety Report 15365671 (Version 5)
Quarter: 2019Q3

REPORT INFORMATION
  Report Type: Report from Study
  Country: DE (occurrence: DE)
  Receive Date: 20180910
  Receipt Date: 20190917
  Transmission Date: 20191004
  Serious: Yes (Hospitalization)
  Sender: FDA-Public Use
  Company Number: DE-ROCHE-2176891

PATIENT
  Age: 53 Year
  Sex: Female
  Weight: 63 kg

DRUGS (18)
  1. COBIMETINIB. [Suspect]
     Active Substance: COBIMETINIB
     Indication: MALIGNANT MELANOMA
     Dosage: DATE OF MOST RECENT DOSE (40 MG) OF COBIMETINIB PRIOR TO SAE ONSET 28/AUG/2018.
     Route: 048
     Dates: start: 20171115
  2. LUVOS [Concomitant]
     Active Substance: ALUMINUM OXIDE\IRON SUCROSE\LIME (CALCIUM OXIDE)\POTASSIUM\SILICON DIOXIDE
     Indication: ABDOMINAL DISCOMFORT
     Dosage: 1 UNIT
     Route: 048
     Dates: start: 20180110
  3. LOTEMAX [Concomitant]
     Active Substance: LOTEPREDNOL ETABONATE
     Dosage: 1 UNIT
     Route: 061
     Dates: start: 20181023
  4. METOPROLOL. [Concomitant]
     Active Substance: METOPROLOL
     Indication: ARRHYTHMIA
     Route: 048
     Dates: start: 2007
  5. LOTEMAX [Concomitant]
     Active Substance: LOTEPREDNOL ETABONATE
     Dosage: 3 UNIT
     Route: 061
     Dates: start: 20180926, end: 20181016
  6. INFLANEFRAN [Concomitant]
     Active Substance: PREDNISOLONE ACETATE
     Dosage: 9 UNIT
     Route: 061
     Dates: start: 20180826, end: 20180901
  7. CYCLOPENTOLAT [Concomitant]
     Indication: UVEITIS
     Dosage: 1 OTHER
     Route: 061
     Dates: start: 20180821, end: 20180905
  8. INFLANEFRAN [Concomitant]
     Active Substance: PREDNISOLONE ACETATE
     Indication: UVEITIS
     Dosage: 10 UNIT
     Route: 061
     Dates: start: 20180821, end: 20180825
  9. INFLANEFRAN [Concomitant]
     Active Substance: PREDNISOLONE ACETATE
     Dosage: 8 UNIT
     Route: 061
     Dates: start: 20180902, end: 20180908
  10. LOTEMAX [Concomitant]
     Active Substance: LOTEPREDNOL ETABONATE
     Dosage: 1 UNIT
     Route: 061
     Dates: start: 20180920, end: 20180925
  11. VEMURAFENIB. [Suspect]
     Active Substance: VEMURAFENIB
     Indication: MALIGNANT MELANOMA
     Dosage: DATE OF MOST RECENT DOSE OF VEMURAFENIB PRIOR TO SAE ONSET: 28/AUG/2018 (3 TABLETS).
     Route: 048
     Dates: start: 20171115
  12. JODTHYROX [Concomitant]
     Active Substance: LEVOTHYROXINE SODIUM\POTASSIUM IODIDE
     Indication: HYPOTHYROIDISM
     Route: 048
     Dates: start: 2010
  13. LOTEMAX [Concomitant]
     Active Substance: LOTEPREDNOL ETABONATE
     Dosage: 2 UNIT
     Route: 061
     Dates: start: 20181017, end: 20181022
  14. PLACEBO [Suspect]
     Active Substance: UNSPECIFIED INGREDIENT
     Indication: MALIGNANT MELANOMA
     Dosage: DATE OF MOST RECENT DOSE PRIOR TO SAE ONSET 22/AUG/2018
     Route: 042
     Dates: start: 20171228
  15. LOTEMAX [Concomitant]
     Active Substance: LOTEPREDNOL ETABONATE
     Indication: UVEITIS
     Dosage: 3 UNIT
     Route: 061
     Dates: start: 20180905, end: 20180907
  16. LOTEMAX [Concomitant]
     Active Substance: LOTEPREDNOL ETABONATE
     Dosage: 2 UNIT
     Route: 061
     Dates: start: 20180908, end: 20180910
  17. INFLANEFRAN [Concomitant]
     Active Substance: PREDNISOLONE ACETATE
     Dosage: 7 UNIT
     Route: 061
     Dates: start: 20180909, end: 20180913
  18. LOTEMAX [Concomitant]
     Active Substance: LOTEPREDNOL ETABONATE
     Dosage: 1 UNIT
     Route: 061
     Dates: start: 20180911, end: 20180914

REACTIONS (1)
  - Respiratory disorder [Not Recovered/Not Resolved]

NARRATIVE: CASE EVENT DATE: 20180828
